FAERS Safety Report 22146842 (Version 1)
Quarter: 2023Q1

REPORT INFORMATION
  Report Type: Spontaneous
  Country: US (occurrence: US)
  Receive Date: 20230328
  Receipt Date: 20230328
  Transmission Date: 20230418
  Serious: Yes (Other)
  Sender: FDA-Public Use
  Company Number: US-UNIQUE PHARMACEUTICAL LABORATORIES-20230300014

PATIENT

DRUGS (6)
  1. FLUCONAZOLE [Suspect]
     Active Substance: FLUCONAZOLE
     Indication: Vulvovaginal mycotic infection
     Dosage: 150 MILLIGRAM DAILY FOR ONE WEEK
     Route: 048
  2. FLUCONAZOLE [Suspect]
     Active Substance: FLUCONAZOLE
     Dosage: ORAL FLUCONAZOLE 800 MG FOLLOWED BY 400 MG FLUCONAZOLE DAILY THEREAFTER, WITH RE-INITIATION OF DAILY
  3. PROGESTERONE [Concomitant]
     Active Substance: PROGESTERONE
     Dosage: 200 MILLIGRAM
     Route: 067
  4. CLOTRIMAZOLE [Concomitant]
     Active Substance: CLOTRIMAZOLE
     Dosage: 2 PERCENT
     Route: 067
  5. BETAMETHASONE [Concomitant]
     Active Substance: BETAMETHASONE
  6. MAGNESIUM SULFATE [Concomitant]
     Active Substance: MAGNESIUM SULFATE
     Indication: Nervous system disorder prophylaxis

REACTIONS (2)
  - Toxicity to various agents [Recovered/Resolved]
  - Foetal exposure during pregnancy [Recovered/Resolved]
